FAERS Safety Report 8579788-4 (Version None)
Quarter: 2012Q3

REPORT INFORMATION
  Report Type: 
  Country: None (occurrence: None)
  Receive Date: 20120808
  Receipt Date: 20120801
  Transmission Date: 20120928
  Serious: Yes (Hospitalization)
  Sender: FDA-Public Use
  Company Number: HR-GENZYME-CAMP-1002301

PATIENT
  Sex: Female
  Weight: 65.5 kg

DRUGS (4)
  1. METHYLPREDNISOLONE [Concomitant]
     Dosage: 1.0 G, QD
     Dates: start: 20091006, end: 20091008
  2. ALEMTUZUMAB [Suspect]
     Indication: MULTIPLE SCLEROSIS
     Dosage: 12 MG, QD
     Route: 042
     Dates: start: 20091006, end: 20091008
  3. ALEMTUZUMAB [Suspect]
     Dosage: 12 MG, QD
     Route: 042
     Dates: start: 20080929, end: 20081003
  4. METHYLPREDNISOLONE [Concomitant]
     Indication: MULTIPLE SCLEROSIS
     Dosage: 1.0 G, QD
     Dates: start: 20080929, end: 20081001

REACTIONS (1)
  - HYPERTHYROIDISM [None]
